FAERS Safety Report 8129553-7 (Version None)
Quarter: 2012Q1

REPORT INFORMATION
  Report Type: 
  Country: None (occurrence: None)
  Receive Date: 20120210
  Receipt Date: 20120201
  Transmission Date: 20120608
  Serious: Yes (Other)
  Sender: FDA-Public Use
  Company Number: US-GLAXOSMITHKLINE-A0799992A

PATIENT
  Age: 58 Year
  Sex: Female

DRUGS (1)
  1. PROMACTA [Suspect]
     Indication: IDIOPATHIC THROMBOCYTOPENIC PURPURA
     Dosage: 50MG PER DAY
     Route: 048
     Dates: start: 20090220, end: 20110113

REACTIONS (9)
  - ANAEMIA [None]
  - PANCYTOPENIA [None]
  - DISEASE PROGRESSION [None]
  - DRUG INEFFECTIVE [None]
  - PLATELET COUNT DECREASED [None]
  - MYELODYSPLASTIC SYNDROME [None]
  - HAEMORRHAGE [None]
  - THROMBOCYTOPENIA [None]
  - BLOOD CREATININE INCREASED [None]
